FAERS Safety Report 9769330 (Version 2)
Quarter: 2013Q4

REPORT INFORMATION
  Report Type: Report from Study
  Country: US (occurrence: US)
  Receive Date: 20131218
  Receipt Date: 20131218
  Transmission Date: 20140711
  Serious: Yes (Hospitalization, Disabling)
  Sender: FDA-Public Use
  Company Number: PHEH2013US024121

PATIENT
  Age: 25 Year
  Sex: Male
  Weight: 170 kg

DRUGS (2)
  1. TOBI PODHALER [Suspect]
     Indication: CYSTIC FIBROSIS
     Dosage: 4 DF, BID
     Route: 055
     Dates: start: 20131025, end: 20131113
  2. TOBI PODHALER [Suspect]
     Indication: PSEUDOMONAS INFECTION

REACTIONS (5)
  - Exercise tolerance decreased [Recovering/Resolving]
  - Dyspnoea [Recovering/Resolving]
  - Pulmonary function test decreased [Recovering/Resolving]
  - Therapeutic response decreased [Recovering/Resolving]
  - Dysphonia [Unknown]
